FAERS Safety Report 17107810 (Version 1)
Quarter: 2019Q4

REPORT INFORMATION
  Report Type: Spontaneous
  Country: US (occurrence: US)
  Receive Date: 20191204
  Receipt Date: 20191204
  Transmission Date: 20200122
  Serious: No
  Sender: FDA-Public Use
  Company Number: US-UCBSA-2017042501

PATIENT
  Age: 14 Year
  Sex: Female
  Weight: 47.62 kg

DRUGS (3)
  1. VIMPAT [Suspect]
     Active Substance: LACOSAMIDE
     Indication: PRODUCT USED FOR UNKNOWN INDICATION
     Dosage: 50 MG, ONCE DAILY (QD) (AT BEDTIME)
     Dates: start: 20170930, end: 2017
  2. VIMPAT [Suspect]
     Active Substance: LACOSAMIDE
     Dosage: 50 MG, 2X/DAY (BID)
     Dates: start: 20171003, end: 2017
  3. VIMPAT [Suspect]
     Active Substance: LACOSAMIDE
     Dosage: 50 MG, ONCE DAILY (QD) (QAM-EVERY MORNING)
     Dates: start: 20171007, end: 20171010

REACTIONS (4)
  - Seizure [Recovered/Resolved]
  - Cognitive disorder [Recovered/Resolved]
  - Depression [Recovered/Resolved]
  - Nausea [Not Recovered/Not Resolved]

NARRATIVE: CASE EVENT DATE: 2017
